FAERS Safety Report 5739382-7 (Version None)
Quarter: 2008Q2

REPORT INFORMATION
  Report Type: 
  Country: None (occurrence: None)
  Receive Date: 20080513
  Receipt Date: 20080429
  Transmission Date: 20081010
  Serious: Yes (Hospitalization, Other)
  Sender: FDA-Public Use
  Company Number: 2008AP001108

PATIENT
  Age: 46 Year
  Sex: Female

DRUGS (5)
  1. TRIAMCINOLONE ACETONIDE [Suspect]
     Indication: RHINITIS SEASONAL
     Dosage: 4 SPR;NAS
     Route: 045
     Dates: start: 20080407
  2. ACETAMINOPHEN [Concomitant]
  3. ACETYLSALICYLIC ACID SRT [Concomitant]
  4. CAFFEINE [Concomitant]
  5. IBUPROFEN [Concomitant]

REACTIONS (4)
  - DIZZINESS [None]
  - HYPOTENSION [None]
  - MIGRAINE [None]
  - VISION BLURRED [None]
